FAERS Safety Report 8045174 (Version 3)
Quarter: 2012Q4

REPORT INFORMATION
  Report Type: Report from Study
  Country: GB (occurrence: GB)
  Receive Date: 20110720
  Receipt Date: 20120911
  Transmission Date: 20130627
  Serious: Yes (Hospitalization)
  Sender: FDA-Public Use
  Company Number: GB-JNJFOC-20110704195

PATIENT
  Age: 16 Year
  Sex: Female
  Weight: 49.9 kg

DRUGS (9)
  1. REMICADE [Suspect]
     Indication: CROHN^S DISEASE
     Route: 042
     Dates: start: 20081208, end: 20090807
  2. HUMIRA [Suspect]
     Indication: PRODUCT USED FOR UNKNOWN INDICATION
     Dates: start: 20110715
  3. HUMIRA [Suspect]
     Indication: PRODUCT USED FOR UNKNOWN INDICATION
     Dates: start: 20091002
  4. HUMIRA [Suspect]
     Indication: PRODUCT USED FOR UNKNOWN INDICATION
     Dates: start: 20110624
  5. AZATHIOPRINE [Concomitant]
  6. OMEPRAZOLE [Concomitant]
  7. ONDANSETRON [Concomitant]
  8. PARACETAMOL [Concomitant]
  9. CALCIUM + D3 [Concomitant]

REACTIONS (1)
  - Clostridium difficile infection [Recovered/Resolved]
